FAERS Safety Report 23173137 (Version 2)
Quarter: 2024Q3

REPORT INFORMATION
  Report Type: Spontaneous
  Country: US (occurrence: US)
  Receive Date: 20231111
  Receipt Date: 20240724
  Transmission Date: 20241017
  Serious: Yes (Hospitalization, Disabling, Other)
  Sender: TEVA
  Company Number: US-TEVA-2023-US-2872865

PATIENT
  Age: 18 Year
  Sex: Male

DRUGS (3)
  1. CYCLOSPORINE [Suspect]
     Active Substance: CYCLOSPORINE
     Indication: Product used for unknown indication
     Dosage: TEVA
     Route: 065
     Dates: start: 202302
  2. CYCLOSPORINE [Suspect]
     Active Substance: CYCLOSPORINE
     Indication: Product used for unknown indication
     Dosage: DOSAGE TEXT: 75 MILLIGRAM, TEVA
     Route: 065
  3. CYCLOSPORINE [Suspect]
     Active Substance: CYCLOSPORINE
     Dosage: APOTEX
     Route: 065
     Dates: start: 202201, end: 202302

REACTIONS (10)
  - Blindness [Not Recovered/Not Resolved]
  - Ear infection [Not Recovered/Not Resolved]
  - Weight increased [Unknown]
  - Drug level increased [Unknown]
  - Product dispensing error [Unknown]
  - Brain oedema [Unknown]
  - Seizure [Unknown]
  - Skin discolouration [Unknown]
  - Neurotoxicity [Unknown]
  - Cerebrospinal fluid leakage [Unknown]
